FAERS Safety Report 7332224-8 (Version None)
Quarter: 2011Q1

REPORT INFORMATION
  Report Type: 
  Country: None (occurrence: None)
  Receive Date: 20110304
  Receipt Date: 20110228
  Transmission Date: 20110831
  Serious: Yes (Hospitalization)
  Sender: FDA-Public Use
  Company Number: JP-ABBOTT-11P-087-0699262-00

PATIENT
  Age: 55 Year
  Sex: Male

DRUGS (7)
  1. ASPIRIN [Concomitant]
     Indication: ANGINA PECTORIS
     Route: 048
  2. DIOVAN [Concomitant]
     Indication: HYPERTENSION
     Route: 048
     Dates: end: 20101115
  3. BLOPRESS [Concomitant]
     Indication: HYPERTENSION
     Route: 048
     Dates: start: 20101115, end: 20101122
  4. EURODIN 2MG TABLETS [Suspect]
     Indication: INSOMNIA
     Route: 048
     Dates: start: 20100401
  5. SIGMART [Concomitant]
     Indication: HYPERTENSION
     Route: 048
     Dates: end: 20101115
  6. PLAVIX [Concomitant]
     Indication: ANGINA PECTORIS
     Route: 048
  7. EURODIN 2MG TABLETS [Suspect]
     Route: 048
     Dates: start: 20101011, end: 20101011

REACTIONS (8)
  - OVERDOSE [None]
  - HALLUCINATION [None]
  - AMNESIA [None]
  - ROAD TRAFFIC ACCIDENT [None]
  - DEPRESSED LEVEL OF CONSCIOUSNESS [None]
  - DELUSION [None]
  - AGITATION [None]
  - DELIRIUM [None]
